FAERS Safety Report 8741685 (Version 2)
Quarter: 2015Q3

REPORT INFORMATION
  Report Type: Report from Study
  Country: US (occurrence: US)
  Receive Date: 20120824
  Receipt Date: 20150916
  Transmission Date: 20151125
  Serious: Yes (Hospitalization, Other)
  Sender: FDA-Public Use
  Company Number: US-BIOGENIDEC-2012BI031387

PATIENT
  Age: 39 Year
  Sex: Female

DRUGS (2)
  1. AVONEX [Suspect]
     Active Substance: INTERFERON BETA-1A
     Indication: MULTIPLE SCLEROSIS
     Route: 030
     Dates: start: 20101214
  2. PREDNISONE. [Concomitant]
     Active Substance: PREDNISONE
     Indication: ASTHMA

REACTIONS (11)
  - Uterine cyst [Recovered/Resolved]
  - Uterine neoplasm [Recovered/Resolved]
  - Cervical cyst [Recovered/Resolved]
  - Post procedural complication [Unknown]
  - Procedural pain [Recovered/Resolved]
  - Pneumonia [Recovered/Resolved]
  - Tooth disorder [Not Recovered/Not Resolved]
  - Cervix neoplasm [Recovered/Resolved]
  - Osteonecrosis [Not Recovered/Not Resolved]
  - Abdominal pain [Recovered/Resolved]
  - Post procedural contusion [Unknown]

NARRATIVE: CASE EVENT DATE: 201207
